FAERS Safety Report 10407271 (Version 1)
Quarter: 2014Q1

REPORT INFORMATION
  Report Type: Spontaneous
  Country: US (occurrence: None)
  Receive Date: 20140228
  Receipt Date: 20140228
  Transmission Date: 20141002
  Serious: No
  Sender: FDA-Public Use
  Company Number: 225054LEO

PATIENT
  Age: 58 Year
  Sex: Female

DRUGS (2)
  1. PICATO (INGENOL MEBUTATE) (0.015 %, GEL) [Suspect]
     Indication: ACTINIC KERATOSIS
     Dates: start: 20131120, end: 20131121
  2. VITAMINS (VITAMINS NOS) [Concomitant]

REACTIONS (4)
  - Application site swelling [None]
  - Eye swelling [None]
  - Application site pain [None]
  - Incorrect drug administration duration [None]
